FAERS Safety Report 12433870 (Version 1)
Quarter: 2016Q2

REPORT INFORMATION
  Report Type: Spontaneous
  Country: US (occurrence: US)
  Receive Date: 20160603
  Receipt Date: 20160603
  Transmission Date: 20160815
  Serious: No
  Sender: FDA-Public Use
  Company Number: US-BAUSCH-BL-2015-024174

PATIENT
  Sex: Female

DRUGS (1)
  1. LOTEPREDNOL ETABONATE OPHTHALMIC OINTMENT 0.5% [Suspect]
     Active Substance: LOTEPREDNOL ETABONATE
     Indication: RASH
     Route: 061
     Dates: start: 2015, end: 2015

REACTIONS (2)
  - Off label use [Recovered/Resolved]
  - Drug ineffective for unapproved indication [Unknown]

NARRATIVE: CASE EVENT DATE: 2015
